FAERS Safety Report 7972655 (Version 4)
Quarter: 2013Q4

REPORT INFORMATION
  Report Type: Spontaneous
  Country: US (occurrence: US)
  Receive Date: 20110603
  Receipt Date: 20131223
  Transmission Date: 20140711
  Serious: Yes (Other)
  Sender: FDA-Public Use
  Company Number: US-BAYER-201042043NA

PATIENT
  Age: 18 Year
  Sex: Female
  Weight: 52.15 kg

DRUGS (3)
  1. YASMIN [Suspect]
     Indication: CONTRACEPTION
     Dosage: UNK UNK, UNK
     Route: 048
     Dates: start: 200311, end: 200806
  2. OCELLA [Suspect]
     Indication: CONTRACEPTION
     Dosage: UNK UNK, UNK
     Route: 048
     Dates: start: 200806, end: 20091215
  3. DOMPERIDONE [Concomitant]
     Dosage: 25 MG, BID
     Route: 048

REACTIONS (7)
  - Cholecystitis chronic [Unknown]
  - Pain [None]
  - Biliary dyskinesia [None]
  - Abdominal pain [Unknown]
  - Nausea [Unknown]
  - Vomiting [Unknown]
  - Weight decreased [Unknown]
